FAERS Safety Report 5049688-5 (Version None)
Quarter: 2006Q3

REPORT INFORMATION
  Report Type: 
  Country: None (occurrence: None)
  Receive Date: 20060707
  Receipt Date: 20060626
  Transmission Date: 20061208
  Serious: Yes (Hospitalization)
  Sender: FDA-Public Use
  Company Number: CAPT20060001

PATIENT
  Age: 8 Month
  Sex: Female

DRUGS (7)
  1. CAPTOPRIL [Suspect]
     Indication: INCREASED VENTRICULAR AFTERLOAD
     Dosage: 1 MG TID PO
     Route: 048
     Dates: start: 20020905, end: 20020919
  2. ASPIRIN [Concomitant]
  3. DIGOXIN [Concomitant]
  4. FUROSEMIDE [Concomitant]
  5. METOCLOPRAMIDE [Concomitant]
  6. OMEPRAZOLE [Concomitant]
  7. AMOXICILLIN [Concomitant]

REACTIONS (12)
  - CRYING [None]
  - EOSINOPHILIA [None]
  - FEEDING DISORDER OF INFANCY OR EARLY CHILDHOOD [None]
  - LIVER PALPABLE SUBCOSTAL [None]
  - LUNG INFILTRATION [None]
  - PSYCHOMOTOR HYPERACTIVITY [None]
  - RESPIRATORY RATE INCREASED [None]
  - RESPIRATORY SYNCYTIAL VIRUS INFECTION [None]
  - RHINORRHOEA [None]
  - RHINOVIRUS INFECTION [None]
  - URINE OUTPUT DECREASED [None]
  - WHITE BLOOD CELL COUNT INCREASED [None]
